FAERS Safety Report 6286393-1 (Version None)
Quarter: 2009Q3

REPORT INFORMATION
  Report Type: 
  Country: None (occurrence: None)
  Receive Date: 20090724
  Receipt Date: 20090714
  Transmission Date: 20100115
  Serious: Yes (Other)
  Sender: FDA-Public Use
  Company Number: 2009SP015597

PATIENT
  Age: 49 Year
  Sex: Female

DRUGS (2)
  1. RIBAVIRIN [Suspect]
     Indication: HEPATITIS C
     Dosage: 1000 MG;QD;PO; 600 MG;QD; PO
     Route: 048
  2. PEGINTERFERON ALFA-2A (CON.) [Concomitant]

REACTIONS (3)
  - ANAEMIA [None]
  - PORPHYRIA NON-ACUTE [None]
  - SERUM FERRITIN INCREASED [None]
